FAERS Safety Report 10178942 (Version 1)
Quarter: 2014Q2

REPORT INFORMATION
  Report Type: Spontaneous
  Country: SI (occurrence: SI)
  Receive Date: 20140519
  Receipt Date: 20140519
  Transmission Date: 20141212
  Serious: Yes (Other)
  Sender: FDA-Public Use
  Company Number: PHHY2014SI057161

PATIENT
  Sex: Female

DRUGS (1)
  1. MOMMOX [Suspect]

REACTIONS (2)
  - Anaphylactic reaction [Unknown]
  - Dyspnoea [Unknown]
